FAERS Safety Report 4794519-1 (Version None)
Quarter: 2005Q4

REPORT INFORMATION
  Report Type: 
  Country: None (occurrence: None)
  Receive Date: 20051011
  Receipt Date: 20050929
  Transmission Date: 20060501
  Serious: Yes (Other)
  Sender: FDA-Public Use
  Company Number: 2005UW14674

PATIENT
  Age: 67 Year
  Sex: Female

DRUGS (3)
  1. PULMICORT [Suspect]
     Route: 055
     Dates: start: 20050523
  2. OXEZE [Concomitant]
  3. VENTOLIN [Concomitant]

REACTIONS (2)
  - ASTHMA [None]
  - DRUG INEFFECTIVE [None]
